FAERS Safety Report 7539638-1 (Version None)
Quarter: 2011Q2

REPORT INFORMATION
  Report Type: 
  Country: None (occurrence: None)
  Receive Date: 20110610
  Receipt Date: 20110606
  Transmission Date: 20111010
  Serious: No
  Sender: FDA-Public Use
  Company Number: US-PFIZER INC-2011123286

PATIENT
  Sex: Male

DRUGS (2)
  1. OMNICEF [Suspect]
     Dosage: UNK
  2. CELEBREX [Suspect]
     Indication: BURSITIS
     Dosage: 200 MG, 2X/DAY

REACTIONS (1)
  - PRURITUS [None]
